FAERS Safety Report 21714064 (Version 1)
Quarter: 2022Q4

REPORT INFORMATION
  Report Type: Spontaneous
  Country: US (occurrence: US)
  Receive Date: 20221212
  Receipt Date: 20221212
  Transmission Date: 20230113
  Serious: No
  Sender: FDA-Public Use
  Company Number: US-BAYER-2022A167827

PATIENT
  Age: 71 Year
  Sex: Female

DRUGS (1)
  1. MIRALAX [Suspect]
     Active Substance: POLYETHYLENE GLYCOL 3350
     Indication: Colonoscopy
     Dosage: MOUTHFUL
     Route: 048
     Dates: start: 20221204, end: 20221205

REACTIONS (2)
  - Off label use [None]
  - Drug ineffective for unapproved indication [None]
